FAERS Safety Report 6103980-1 (Version None)
Quarter: 2009Q1

REPORT INFORMATION
  Report Type: 
  Country: None (occurrence: None)
  Receive Date: 20090302
  Receipt Date: 20090217
  Transmission Date: 20090719
  Serious: Yes (Hospitalization)
  Sender: FDA-Public Use
  Company Number: 1000004955

PATIENT
  Age: 87 Year
  Sex: Female

DRUGS (2)
  1. CITALOPRAM HYDROBROMIDE [Suspect]
     Indication: DEPRESSION
     Dosage: ORAL
     Route: 048
     Dates: start: 20081201, end: 20090116
  2. LYRICA [Suspect]
     Dosage: ORAL
     Route: 048
     Dates: start: 20081226, end: 20090116

REACTIONS (2)
  - AGRANULOCYTOSIS [None]
  - PYREXIA [None]
